FAERS Safety Report 10699539 (Version 1)
Quarter: 2015Q1

REPORT INFORMATION
  Report Type: Spontaneous
  Country: SE (occurrence: SE)
  Receive Date: 20150109
  Receipt Date: 20150109
  Transmission Date: 20150721
  Serious: Yes (Life-Threatening, Hospitalization)
  Sender: FDA-Public Use
  Company Number: SE-BRISTOL-MYERS SQUIBB COMPANY-BMS-2014-005985

PATIENT

DRUGS (6)
  1. FURIX [Concomitant]
     Active Substance: FUROSEMIDE
     Dosage: RETARD
  2. KALCIPOS-D [Concomitant]
     Active Substance: CALCIUM CARBONATE\CHOLECALCIFEROL
  3. METOPROLOL [Concomitant]
     Active Substance: METOPROLOL
  4. ELIQUIS [Suspect]
     Active Substance: APIXABAN
     Indication: THROMBOSIS PROPHYLAXIS
     Dosage: 2.5 MG, BID
     Route: 048
     Dates: start: 20140915, end: 20141209
  5. ATACAND [Concomitant]
     Active Substance: CANDESARTAN CILEXETIL
  6. FOLACIN                            /00024201/ [Concomitant]
     Active Substance: FOLIC ACID

REACTIONS (2)
  - Haemorrhoidal haemorrhage [Not Recovered/Not Resolved]
  - Blood alkaline phosphatase increased [Not Recovered/Not Resolved]

NARRATIVE: CASE EVENT DATE: 20141208
